FAERS Safety Report 9194340 (Version 1)
Quarter: 2013Q1

REPORT INFORMATION
  Report Type: Spontaneous
  Country: US (occurrence: US)
  Receive Date: 20130326
  Receipt Date: 20130326
  Transmission Date: 20140127
  Serious: Yes (Other)
  Sender: FDA-Public Use
  Company Number: US-RB-051333-13

PATIENT
  Age: 30 Year
  Sex: Male

DRUGS (3)
  1. SUBOXONE FILM [Suspect]
     Dosage: SUBOXONE FILM
     Route: 060
     Dates: start: 2012, end: 201202
  2. SUBOXONE FILM [Suspect]
     Dosage: SUBOXONE FILM
     Route: 042
     Dates: start: 2012, end: 201302
  3. SUBOXONE FILM [Suspect]
     Indication: DRUG DEPENDENCE
     Dosage: SUBOXONE FILM; VARIOUS TAPERED DOSES
     Route: 060
     Dates: start: 201302

REACTIONS (5)
  - Intentional drug misuse [Recovered/Resolved]
  - Ventricular extrasystoles [Unknown]
  - Chest pain [Unknown]
  - Heart rate increased [Unknown]
  - Underdose [Unknown]
